FAERS Safety Report 14981337 (Version 2)
Quarter: 2018Q3

REPORT INFORMATION
  Report Type: Spontaneous
  Country: US (occurrence: US)
  Receive Date: 20180606
  Receipt Date: 20180809
  Transmission Date: 20181010
  Serious: No
  Sender: FDA-Public Use
  Company Number: US-XIROMED, LLC-XIRO20180308

PATIENT
  Age: 21 Year
  Sex: Female

DRUGS (4)
  1. ZOLOFT [Concomitant]
     Active Substance: SERTRALINE HYDROCHLORIDE
     Indication: INSOMNIA
  2. GABAPENTIN. [Concomitant]
     Active Substance: GABAPENTIN
     Indication: PRODUCT USED FOR UNKNOWN INDICATION
     Dosage: UNKNOWN
     Route: 065
  3. TRI?LO? ESTARYLLA [Suspect]
     Active Substance: ETHINYL ESTRADIOL\NORGESTIMATE
     Indication: CONTRACEPTION
     Dosage: ONE TABLET
     Route: 048
     Dates: start: 201804
  4. ZOLOFT [Concomitant]
     Active Substance: SERTRALINE HYDROCHLORIDE
     Indication: DEPRESSION
     Dosage: UNKNOWN
     Route: 048

REACTIONS (1)
  - Acne [Recovered/Resolved]

NARRATIVE: CASE EVENT DATE: 201805
